FAERS Safety Report 22133019 (Version 3)
Quarter: 2024Q3

REPORT INFORMATION
  Report Type: Report from Study
  Country: DE (occurrence: DE)
  Receive Date: 20230324
  Receipt Date: 20240923
  Transmission Date: 20241017
  Serious: Yes (Other)
  Sender: TAKEDA
  Company Number: DE-TAKEDA-2021TUS059446

PATIENT
  Age: 52 Year
  Sex: Male
  Weight: 120 kg

DRUGS (7)
  1. LANADELUMAB [Suspect]
     Active Substance: LANADELUMAB
     Indication: Hereditary angioedema
     Dosage: 300 MILLIGRAM, Q2WEEKS
     Route: 065
     Dates: end: 20210922
  2. LANADELUMAB [Suspect]
     Active Substance: LANADELUMAB
     Dosage: 300 MILLIGRAM, Q3WEEKS
     Route: 065
     Dates: end: 20230522
  3. LANADELUMAB [Suspect]
     Active Substance: LANADELUMAB
     Dosage: 300 MILLIGRAM, Q4WEEKS
     Route: 065
  4. Comirnaty [Concomitant]
     Indication: COVID-19 immunisation
     Dosage: 30 MICROGRAM
     Route: 030
     Dates: start: 20210428, end: 20210428
  5. CERTOPARIN SODIUM [Concomitant]
     Active Substance: CERTOPARIN SODIUM
     Indication: Pulmonary embolism
     Dosage: 16000 INTERNATIONAL UNIT
     Route: 058
     Dates: start: 20230602, end: 20230614
  6. APIXABAN [Concomitant]
     Active Substance: APIXABAN
     Indication: Pulmonary embolism
     Dosage: 20 MILLIGRAM
     Route: 048
     Dates: start: 20230615, end: 20230622
  7. APIXABAN [Concomitant]
     Active Substance: APIXABAN
     Dosage: 10 MILLIGRAM, QD
     Route: 048
     Dates: start: 20230623

REACTIONS (2)
  - Hypokalaemia [Recovered/Resolved]
  - Hypertonia [Not Recovered/Not Resolved]

NARRATIVE: CASE EVENT DATE: 20201126
